FAERS Safety Report 12508463 (Version 1)
Quarter: 2016Q2

REPORT INFORMATION
  Report Type: Spontaneous
  Country: GB (occurrence: GB)
  Receive Date: 20160629
  Receipt Date: 20160629
  Transmission Date: 20160815
  Serious: Yes (Other)
  Sender: FDA-Public Use
  Company Number: GB-TEVA-670397ACC

PATIENT
  Age: 53 Year
  Sex: Female
  Weight: 82 kg

DRUGS (16)
  1. RABEPRAZOLE [Concomitant]
     Active Substance: RABEPRAZOLE
     Dosage: 1 DOSAGE FORMS DAILY;
     Dates: start: 20151201
  2. TRAZODONE [Concomitant]
     Active Substance: TRAZODONE HYDROCHLORIDE
     Dosage: 1 DOSAGE FORMS DAILY; AT NIGHT
     Route: 048
     Dates: start: 20151201
  3. METHOTREXATE [Concomitant]
     Active Substance: METHOTREXATE
     Dosage: 4 TABLETS
     Dates: start: 20160607
  4. ZOMORPH [Concomitant]
     Active Substance: MORPHINE SULFATE
     Dosage: TAKE ONE OR TWO EVERY 12 HOURS
     Dates: start: 20151201
  5. CYCLIZINE [Concomitant]
     Active Substance: CYCLIZINE
     Dosage: 3 DOSAGE FORMS DAILY; UP TO A MAXIMUM OF THREE TIMES DAILY.
     Dates: start: 20160607
  6. FEXOFENADINE [Concomitant]
     Active Substance: FEXOFENADINE\FEXOFENADINE HYDROCHLORIDE
     Dosage: 4 DOSAGE FORMS DAILY;
     Dates: start: 20151201
  7. DICLOFENAC SODIUM. [Concomitant]
     Active Substance: DICLOFENAC SODIUM
     Dosage: 3 DOSAGE FORMS DAILY; WITH FOOD
     Dates: start: 20160315
  8. GABAPENTIN. [Concomitant]
     Active Substance: GABAPENTIN
     Dosage: 12 DOSAGE FORMS DAILY;
     Route: 048
     Dates: start: 20151201
  9. MORPHINE SULFATE. [Concomitant]
     Active Substance: MORPHINE SULFATE
     Dosage: 20 ML DAILY; UP TO 4 TIMES A DAY
     Dates: start: 20151201
  10. ZOLMITRIPTAN. [Concomitant]
     Active Substance: ZOLMITRIPTAN
     Indication: MIGRAINE
     Dosage: AT ONSET OF MIGRAINE.  IF NO RESPONSE ...
     Dates: start: 20151201
  11. PREDNISOLONE. [Suspect]
     Active Substance: PREDNISOLONE
     Dates: start: 20160609
  12. NITROFURANTOIN. [Concomitant]
     Active Substance: NITROFURANTOIN
     Dosage: 4 DOSAGE FORMS DAILY;
     Dates: start: 20160531, end: 20160607
  13. FLUOXETINE [Concomitant]
     Active Substance: FLUOXETINE HYDROCHLORIDE
     Dosage: 3 DOSAGE FORMS DAILY;
     Dates: start: 20151201
  14. HYDROXYCHLOROQUINE SULFATE. [Concomitant]
     Active Substance: HYDROXYCHLOROQUINE SULFATE
     Dosage: SHARED CARE BE INITIATED BY A SPECIALIST ONLY
     Dates: start: 20160106
  15. HYPROMELLOSE [Concomitant]
     Active Substance: HYPROMELLOSES
     Dates: start: 20151201
  16. OXYTETRACYCLINE [Concomitant]
     Active Substance: OXYTETRACYCLINE
     Dosage: 4 DOSAGE FORMS DAILY;
     Dates: start: 20160315, end: 20160322

REACTIONS (1)
  - Swelling face [Unknown]

NARRATIVE: CASE EVENT DATE: 20160609
